FAERS Safety Report 14908047 (Version 1)
Quarter: 2018Q2

REPORT INFORMATION
  Report Type: Spontaneous
  Country: US (occurrence: US)
  Receive Date: 20180430
  Receipt Date: 20180430
  Transmission Date: 20180711
  Serious: Yes (Hospitalization)
  Sender: FDA-Public Use
  Company Number: None

PATIENT
  Age: 73 Year
  Sex: Female

DRUGS (21)
  1. GENOTROPIN [Suspect]
     Active Substance: SOMATROPIN
     Indication: HYPOPITUITARISM
     Route: 058
     Dates: start: 20100616
  2. LORAZEPAM. [Concomitant]
     Active Substance: LORAZEPAM
  3. DIVALPROEX [Concomitant]
     Active Substance: DIVALPROEX SODIUM
  4. LACTULOSE. [Concomitant]
     Active Substance: LACTULOSE
  5. DAYPRO [Concomitant]
     Active Substance: OXAPROZIN
  6. SMZ/TMP [Concomitant]
     Active Substance: SULFAMETHOXAZOLE\TRIMETHOPRIM
  7. AZITHROMYCIN ANHYDROUS. [Concomitant]
     Active Substance: AZITHROMYCIN ANHYDROUS
  8. HALFLYTELY [Concomitant]
     Active Substance: POLYETHYLENE GLYCOL 3350\POTASSIUM CHLORIDE\SODIUM BICARBONATE\SODIUM CHLORIDE
  9. DEPAKOTE [Concomitant]
     Active Substance: DIVALPROEX SODIUM
  10. SILONOR [Concomitant]
  11. GABAPENTIN. [Concomitant]
     Active Substance: GABAPENTIN
  12. FLUCONAZOLE. [Concomitant]
     Active Substance: FLUCONAZOLE
  13. CYPROHEPTAD [Concomitant]
  14. CLONAZEPAM. [Concomitant]
     Active Substance: CLONAZEPAM
  15. LEVOTHYROXIN [Concomitant]
     Active Substance: LEVOTHYROXINE
  16. ESZOPICLONE. [Concomitant]
     Active Substance: ESZOPICLONE
  17. CLOTRIMAZOLE. [Concomitant]
     Active Substance: CLOTRIMAZOLE
  18. DIAZEPAM. [Concomitant]
     Active Substance: DIAZEPAM
  19. LISINOPRIL. [Concomitant]
     Active Substance: LISINOPRIL
  20. PREDNISONE. [Concomitant]
     Active Substance: PREDNISONE
  21. KLONOPIN [Concomitant]
     Active Substance: CLONAZEPAM

REACTIONS (1)
  - Drug dose omission [None]

NARRATIVE: CASE EVENT DATE: 201802
